FAERS Safety Report 19867026 (Version 1)
Quarter: 2021Q3

REPORT INFORMATION
  Report Type: Spontaneous
  Country: US (occurrence: US)
  Receive Date: 20210922
  Receipt Date: 20210922
  Transmission Date: 20211014
  Serious: No
  Sender: FDA-Public Use
  Company Number: None

PATIENT
  Age: 51 Year
  Sex: Female
  Weight: 66.6 kg

DRUGS (11)
  1. ATENONOL [Concomitant]
  2. VITAMIN D [Concomitant]
     Active Substance: VITAMIN D NOS
  3. GINGER. [Concomitant]
     Active Substance: GINGER
  4. MELATONIN [Concomitant]
     Active Substance: MELATONIN
  5. ZINC. [Concomitant]
     Active Substance: ZINC
  6. TUMERIC [Concomitant]
     Active Substance: HERBALS\TURMERIC
  7. SINGULAIR [Concomitant]
     Active Substance: MONTELUKAST SODIUM
  8. CASIRIVIMAB AND IMDEVIMAB [Suspect]
     Active Substance: CASIRIVIMAB\IMDEVIMAB
     Indication: COVID-19 TREATMENT
     Dates: start: 20210921, end: 20210921
  9. LETROZOLE. [Concomitant]
     Active Substance: LETROZOLE
  10. MULTIVATIMS [Concomitant]
  11. ELDERBERRY [Concomitant]
     Active Substance: HERBALS

REACTIONS (6)
  - Dizziness [None]
  - Body temperature increased [None]
  - Nausea [None]
  - Headache [None]
  - Chills [None]
  - Hyperhidrosis [None]

NARRATIVE: CASE EVENT DATE: 20210921
